FAERS Safety Report 12897148 (Version 1)
Quarter: 2016Q4

REPORT INFORMATION
  Report Type: Spontaneous
  Country: US (occurrence: US)
  Receive Date: 20161031
  Receipt Date: 20161031
  Transmission Date: 20170207
  Serious: No
  Sender: FDA-Public Use
  Company Number: US-ENDO PHARMACEUTICALS INC.-2016-001608

PATIENT
  Age: 56 Year
  Sex: Female
  Weight: 74.91 kg

DRUGS (3)
  1. MORPHINE SULFATE ER 30MG [Suspect]
     Active Substance: MORPHINE SULFATE
     Indication: PAIN
     Route: 065
  2. PERCOCET [Suspect]
     Active Substance: ACETAMINOPHEN\OXYCODONE HYDROCHLORIDE
     Indication: PAIN
     Dosage: 10 MG (30 MG/975 MG)
     Route: 065
  3. PERCOCET [Suspect]
     Active Substance: ACETAMINOPHEN\OXYCODONE HYDROCHLORIDE
     Dosage: UP TO SIX 10 MG TABLETS PER DAY
     Route: 065

REACTIONS (1)
  - Drug effect decreased [Unknown]

NARRATIVE: CASE EVENT DATE: 20160216
